FAERS Safety Report 5284362-1 (Version None)
Quarter: 2007Q1

REPORT INFORMATION
  Report Type: 
  Country: None (occurrence: None)
  Receive Date: 20070327
  Receipt Date: 20070316
  Transmission Date: 20070707
  Serious: Yes (Hospitalization)
  Sender: FDA-Public Use
  Company Number: 2007P1000147

PATIENT
  Age: 46 Year
  Sex: Male

DRUGS (6)
  1. BUSULFAN (BUSULFAN) [Suspect]
     Indication: STEM CELL TRANSPLANT
     Dosage: 8 ML;QID;IV
     Route: 042
     Dates: start: 20061016, end: 20061019
  2. CYCLOPHOSPHAMIDE [Suspect]
     Indication: STEM CELL TRANSPLANT
     Dosage: 3500 MG;QD;IV
     Route: 042
     Dates: start: 20061020, end: 20061021
  3. FILGRASTIM [Concomitant]
  4. PHENYTOIN [Concomitant]
  5. PHENYTOIN [Concomitant]
  6. METHOTREXATE [Concomitant]

REACTIONS (1)
  - ACUTE GRAFT VERSUS HOST DISEASE [None]
